FAERS Safety Report 8113864-5 (Version None)
Quarter: 2012Q1

REPORT INFORMATION
  Report Type: 
  Country: None (occurrence: None)
  Receive Date: 20120127
  Receipt Date: 20110202
  Transmission Date: 20120608
  Serious: No
  Sender: FDA-Public Use
  Company Number: US-ABBOTT-11P-163-0702167-00

PATIENT
  Sex: Female
  Weight: 81.72 kg

DRUGS (7)
  1. CYMBALTA [Concomitant]
     Indication: PAIN
  2. NEURONTIN [Concomitant]
     Indication: PAIN
  3. ANT-ACID OTC [Concomitant]
     Indication: PRODUCT USED FOR UNKNOWN INDICATION
  4. NEURONTIN [Concomitant]
     Indication: FIBROMYALGIA
     Dosage: QHS
  5. CYMBALTA [Concomitant]
     Indication: FIBROMYALGIA
     Dosage: QHS
  6. HUMIRA [Suspect]
     Indication: PSORIASIS
     Route: 058
     Dates: start: 20101001
  7. HUMIRA [Suspect]
     Indication: PSORIATIC ARTHROPATHY

REACTIONS (2)
  - BACK PAIN [None]
  - PAIN IN EXTREMITY [None]
